FAERS Safety Report 24460586 (Version 1)
Quarter: 2024Q4

REPORT INFORMATION
  Report Type: Report from Study
  Country: US (occurrence: US)
  Receive Date: 20241018
  Receipt Date: 20241018
  Transmission Date: 20250115
  Serious: No
  Sender: ROCHE
  Company Number: US-ROCHE-3537024

PATIENT
  Age: 80 Year
  Sex: Female
  Weight: 75.3 kg

DRUGS (4)
  1. RITUXAN [Suspect]
     Active Substance: RITUXIMAB
     Indication: Immunoglobulin G4 related disease
     Dosage: INFUSE 50 ML (500 MG TOTAL) INTO A VENOUS CATHETER ONE TIME FOR ONE DOSE
     Route: 041
     Dates: start: 20240329
  2. ACETAMINOPHEN [Concomitant]
     Active Substance: ACETAMINOPHEN
     Route: 048
  3. HYDROCORTISONE [Concomitant]
     Active Substance: HYDROCORTISONE
     Route: 042
  4. BENADRYL [Concomitant]
     Active Substance: DIPHENHYDRAMINE HYDROCHLORIDE
     Route: 042

REACTIONS (2)
  - Off label use [Unknown]
  - No adverse event [Unknown]
